FAERS Safety Report 16370323 (Version 1)
Quarter: 2019Q2

REPORT INFORMATION
  Report Type: Spontaneous
  Country: US (occurrence: US)
  Receive Date: 20190423
  Receipt Date: 20190423
  Transmission Date: 20190711
  Serious: No
  Sender: FDA-Public Use
  Company Number: None

PATIENT
  Age: 63 Year
  Sex: Female

DRUGS (1)
  1. ESTRADIOL VAG CRMW/APPL42.5G-0.01% [Suspect]
     Active Substance: ESTRADIOL
     Route: 067
     Dates: start: 20190408

REACTIONS (2)
  - Incorrect dose administered [None]
  - Drug ineffective [None]

NARRATIVE: CASE EVENT DATE: 20190408
